FAERS Safety Report 9201199 (Version 2)
Quarter: 2013Q2

REPORT INFORMATION
  Report Type: Spontaneous
  Country: US (occurrence: US)
  Receive Date: 20130401
  Receipt Date: 20130520
  Transmission Date: 20140414
  Serious: No
  Sender: FDA-Public Use
  Company Number: US-PFIZER INC-2013102154

PATIENT
  Age: 26 Year
  Sex: Female
  Weight: 83.9 kg

DRUGS (2)
  1. ADVIL PM [Suspect]
     Indication: BACK PAIN
     Dosage: TWO CAPLET ONCE A DAY AT NIGHT
     Route: 048
     Dates: start: 201303
  2. ADVIL PM [Suspect]
     Indication: INSOMNIA

REACTIONS (1)
  - Drug ineffective [Unknown]
